FAERS Safety Report 9734921 (Version 1)
Quarter: 2013Q4

REPORT INFORMATION
  Report Type: Spontaneous
  Country: US (occurrence: US)
  Receive Date: 20131206
  Receipt Date: 20131206
  Transmission Date: 20140711
  Serious: No
  Sender: FDA-Public Use
  Company Number: US-PFIZER INC-2013345750

PATIENT
  Sex: Male

DRUGS (1)
  1. NITROSTAT [Suspect]
     Dosage: UNK

REACTIONS (2)
  - Product taste abnormal [Unknown]
  - Dysgeusia [Unknown]
